FAERS Safety Report 7177718-3 (Version None)
Quarter: 2010Q4

REPORT INFORMATION
  Report Type: 
  Country: None (occurrence: None)
  Receive Date: 20101220
  Receipt Date: 20101207
  Transmission Date: 20110411
  Serious: Yes (Other)
  Sender: FDA-Public Use
  Company Number: US-SANOFI-AVENTIS-2010SA074453

PATIENT
  Age: 33 Year
  Sex: Female

DRUGS (6)
  1. PLAVIX [Suspect]
     Route: 048
     Dates: start: 20090101
  2. PLAVIX [Suspect]
     Route: 048
     Dates: start: 20090101
  3. ASPIRIN [Suspect]
     Route: 048
     Dates: start: 20090101
  4. ASPIRIN [Suspect]
     Route: 048
     Dates: start: 20090101
  5. METOPROLOL TARTRATE [Suspect]
     Route: 048
     Dates: start: 20090101, end: 20100101
  6. SIMVASTATIN [Suspect]
     Route: 065
     Dates: start: 20090101, end: 20100101

REACTIONS (2)
  - ABORTION SPONTANEOUS [None]
  - DRUG EXPOSURE DURING PREGNANCY [None]
